FAERS Safety Report 9030882 (Version 2)
Quarter: 2013Q1

REPORT INFORMATION
  Report Type: Report from Study
  Country: US (occurrence: US)
  Receive Date: 20130123
  Receipt Date: 20130225
  Transmission Date: 20140127
  Serious: Yes (Other)
  Sender: FDA-Public Use
  Company Number: US-ROCHE-1182471

PATIENT
  Age: 34 Year
  Sex: Female
  Weight: 86.26 kg

DRUGS (1)
  1. ACTEMRA [Suspect]
     Indication: JUVENILE IDIOPATHIC ARTHRITIS
     Route: 042
     Dates: end: 20110311

REACTIONS (1)
  - Gastrointestinal perforation [Recovering/Resolving]
